FAERS Safety Report 9381359 (Version 3)
Quarter: 2013Q3

REPORT INFORMATION
  Report Type: Spontaneous
  Country: DE (occurrence: IT)
  Receive Date: 20130703
  Receipt Date: 20130730
  Transmission Date: 20140515
  Serious: Yes (Hospitalization)
  Sender: FDA-Public Use
  Company Number: IT-FRI-1000046386

PATIENT
  Age: 90 Year
  Sex: Female

DRUGS (10)
  1. MEMANTINE [Suspect]
     Dosage: 20 MG
     Dates: start: 20130328, end: 20130421
  2. MEMANTINE [Suspect]
     Dosage: 10 MG
     Route: 048
     Dates: start: 20130422
  3. LEXOTAN [Suspect]
     Dosage: 8 DF
     Route: 048
     Dates: start: 20120422, end: 20130421
  4. LEXOTAN [Suspect]
     Route: 048
     Dates: start: 20130422
  5. TRITTICO [Suspect]
     Dosage: 50 MG
     Route: 048
     Dates: start: 20120422, end: 20130421
  6. TALOFEN [Suspect]
     Dosage: 4 DF DOSAGE FORM
     Route: 048
     Dates: start: 20120422, end: 20130421
  7. PARACETAMOL [Concomitant]
     Dosage: 2000 MG
  8. RIFAXIMIN [Concomitant]
  9. TIKLID [Concomitant]
     Dosage: 250 MG
     Route: 048
  10. FENOFIBRATE [Concomitant]
     Dosage: 200 MG
     Route: 048

REACTIONS (1)
  - Presyncope [Recovering/Resolving]
